FAERS Safety Report 10956314 (Version 1)
Quarter: 2015Q1

REPORT INFORMATION
  Report Type: Spontaneous
  Country: CA (occurrence: CA)
  Receive Date: 20150326
  Receipt Date: 20150326
  Transmission Date: 20150721
  Serious: Yes (Death)
  Sender: FDA-Public Use
  Company Number: CA-TEVA-550032ACC

PATIENT
  Age: 66 Year

DRUGS (7)
  1. APO-SALVENT [Concomitant]
     Active Substance: ALBUTEROL
     Dosage: UNKNOWN FORM STRENGTH
     Route: 065
  2. QUININE [Concomitant]
     Active Substance: QUININE
     Dosage: UNKNOWN FORM STRENGTH
     Route: 065
  3. TAMSULOSIN CR [Concomitant]
     Active Substance: TAMSULOSIN
     Dosage: UNKNOWN FORM STRENGTH
     Route: 065
  4. DITROPAN XL -(10MG) [Concomitant]
     Route: 065
  5. SPIRIVA [Concomitant]
     Active Substance: TIOTROPIUM BROMIDE MONOHYDRATE
     Dosage: UNKNOWN FORM STRENGTH
     Route: 065
  6. AMITRIPTYLINE [Concomitant]
     Active Substance: AMITRIPTYLINE
     Dosage: UNKNOWN FORM STRENGTH
     Route: 065
  7. MORPHINE [Suspect]
     Active Substance: MORPHINE
     Indication: PRODUCT USED FOR UNKNOWN INDICATION
     Dosage: 120 MILLIGRAM DAILY;
     Route: 065

REACTIONS (1)
  - Overdose [Fatal]
